FAERS Safety Report 4829918-2 (Version None)
Quarter: 2005Q4

REPORT INFORMATION
  Report Type: 
  Country: None (occurrence: None)
  Receive Date: 20051114
  Receipt Date: 20051027
  Transmission Date: 20060501
  Serious: Yes (Hospitalization)
  Sender: FDA-Public Use
  Company Number: 2005BI019825

PATIENT
  Age: 54 Year
  Sex: Male
  Weight: 68.0396 kg

DRUGS (3)
  1. AVONEX [Suspect]
     Indication: MULTIPLE SCLEROSIS
     Dosage: QW, IM; SEE IMAGE
     Route: 030
  2. VITAMINS [Concomitant]
  3. INDERAL [Concomitant]

REACTIONS (20)
  - CHILLS [None]
  - COGNITIVE DISORDER [None]
  - COLLAPSE OF LUNG [None]
  - DEPRESSION [None]
  - DIFFICULTY IN WALKING [None]
  - FALL [None]
  - FATIGUE [None]
  - HYPERSENSITIVITY [None]
  - HYPERTENSION [None]
  - INFLUENZA LIKE ILLNESS [None]
  - LUNG INJURY [None]
  - MALAISE [None]
  - MULTIPLE SCLEROSIS RELAPSE [None]
  - PAIN [None]
  - PARAESTHESIA [None]
  - PYREXIA [None]
  - RIB FRACTURE [None]
  - SENSATION OF HEAVINESS [None]
  - STRESS [None]
  - TREMOR [None]
